FAERS Safety Report 22014110 (Version 1)
Quarter: 2023Q1

REPORT INFORMATION
  Report Type: Spontaneous
  Country: BR (occurrence: BR)
  Receive Date: 20230221
  Receipt Date: 20230221
  Transmission Date: 20230417
  Serious: Yes (Other)
  Sender: FDA-Public Use
  Company Number: BR-CELLTRION INC.-2022BR010923

PATIENT

DRUGS (9)
  1. TRUXIMA [Suspect]
     Active Substance: RITUXIMAB-ABBS
     Indication: Lymphoma
     Dosage: 750 MG (D1, 8 CYCLES, EVERY 21 DAYS)
     Route: 042
     Dates: start: 20220620
  2. VINCRISTINE [Concomitant]
     Active Substance: VINCRISTINE
     Indication: Lymphoma
     Dosage: 2 MG (D1 8 CYCLES)
     Route: 042
     Dates: start: 20220620
  3. DOXORUBICIN [Concomitant]
     Active Substance: DOXORUBICIN
     Indication: Lymphoma
     Dosage: 100 MG (D1  8 CYCLES)
     Route: 042
     Dates: start: 20220620
  4. CYCLOPHOSPHAMIDE [Concomitant]
     Active Substance: CYCLOPHOSPHAMIDE
     Indication: Lymphoma
     Dosage: 1500 MG (D1  8 CYCLES)
     Route: 042
     Dates: start: 20220620
  5. PREDNISONE [Concomitant]
     Active Substance: PREDNISONE
     Indication: Lymphoma
     Dosage: D1 TO D5 - 8 CYCLES
     Route: 042
     Dates: start: 20220620
  6. ACETAMINOPHEN [Concomitant]
     Active Substance: ACETAMINOPHEN
     Dosage: 750 MG - 8 CYCLES
     Route: 042
     Dates: start: 20220620
  7. DIPHENHYDRAMINE [Concomitant]
     Active Substance: DIPHENHYDRAMINE
     Dosage: 50 MG - 8 CYCLES
     Route: 042
     Dates: start: 20220620
  8. DEXAMETHASONE [Concomitant]
     Active Substance: DEXAMETHASONE
     Dosage: 10 MG - 8 CYCLES
     Route: 042
     Dates: start: 20220620
  9. GRANISETRONE [Concomitant]
     Dosage: 1 MG; 1 D1 8 CYCLES
     Route: 042
     Dates: start: 20220620

REACTIONS (1)
  - Paraesthesia [Recovered/Resolved]

NARRATIVE: CASE EVENT DATE: 20220620
